FAERS Safety Report 8780112 (Version 1)
Quarter: 2012Q4

REPORT INFORMATION
  Report Type: Spontaneous
  Country: US (occurrence: None)
  Receive Date: 20120831
  Receipt Date: 20120831
  Transmission Date: 20130627
  Serious: Yes (Other)
  Sender: FDA-Public Use
  Company Number: None

PATIENT
  Age: 48 Year
  Sex: Female
  Weight: 102.51 kg

DRUGS (10)
  1. NEXIUM [Suspect]
     Route: 048
     Dates: start: 20100802
  2. PROTONIX [Suspect]
     Route: 048
     Dates: start: 20100809
  3. FUROSEMIDE [Concomitant]
  4. LISINOPRIL [Concomitant]
  5. LANSOPRAZOLE [Concomitant]
  6. DEPO PROVERA [Concomitant]
  7. LISINOPRIL [Concomitant]
  8. VIT D [Concomitant]
  9. FUROSEMIDE [Concomitant]
  10. XANAX [Concomitant]

REACTIONS (3)
  - Nausea [None]
  - Vomiting [None]
  - Dyspepsia [None]
